FAERS Safety Report 9507059 (Version 2)
Quarter: 2013Q4

REPORT INFORMATION
  Report Type: Spontaneous
  Country: GB (occurrence: None)
  Receive Date: 20130904
  Receipt Date: 20131211
  Transmission Date: 20140711
  Serious: Yes (Disabling, Other)
  Sender: FDA-Public Use
  Company Number: AUR-APL-2013-07164

PATIENT
  Age: 27 Year
  Sex: Male
  Weight: 70.76 kg

DRUGS (7)
  1. SERTRALINE (SERTRALINE) [Suspect]
     Indication: ANXIETY
     Route: 048
     Dates: start: 2004
  2. SERTRALINE (SERTRALINE) [Suspect]
     Indication: DEPRESSION
     Route: 048
     Dates: start: 2004
  3. AVAMYS (FLUTICASONE FUROATE) [Concomitant]
  4. DYMISTA (DUONASE /06209401/) [Concomitant]
  5. FEXOFENADINE HYDROCHLORIDE (FEXOFENADINE HYDROCHLORIDE) [Concomitant]
  6. QVAR (BECLOMETASONE DIPROPIONATE) [Concomitant]
  7. VENTOLIN (SALBUTAMOL) [Concomitant]

REACTIONS (7)
  - Erectile dysfunction [None]
  - Premature ejaculation [None]
  - Genital hypoaesthesia [None]
  - Male orgasmic disorder [None]
  - Suicidal ideation [None]
  - Incorrect dose administered [None]
  - Incorrect drug administration duration [None]
